FAERS Safety Report 7493188-X (Version None)
Quarter: 2011Q2

REPORT INFORMATION
  Report Type: 
  Country: None (occurrence: None)
  Receive Date: 20110520
  Receipt Date: 20110513
  Transmission Date: 20111010
  Serious: Yes (Death, Other)
  Sender: FDA-Public Use
  Company Number: JP-AMGEN-JPNCT2011025881

PATIENT
  Age: 80 Year
  Sex: Male

DRUGS (3)
  1. GAMOFA [Concomitant]
     Indication: DYSPEPSIA
     Route: 048
     Dates: start: 20101125, end: 20110221
  2. PANITUMUMAB [Suspect]
     Indication: COLORECTAL CANCER
     Dosage: 275 MG, Q2WK
     Route: 041
     Dates: start: 20101125, end: 20110208
  3. FERROUS CITRATE [Concomitant]
     Indication: IRON DEFICIENCY ANAEMIA
     Route: 048
     Dates: start: 20101125, end: 20110221

REACTIONS (9)
  - PLEURAL EFFUSION [None]
  - DIARRHOEA [None]
  - PNEUMOCYSTIS JIROVECI PNEUMONIA [None]
  - MALAISE [None]
  - HYPOCALCAEMIA [None]
  - HYPOMAGNESAEMIA [None]
  - PYELONEPHRITIS [None]
  - DEHYDRATION [None]
  - DECREASED APPETITE [None]
